FAERS Safety Report 4874338-8 (Version None)
Quarter: 2006Q1

REPORT INFORMATION
  Report Type: 
  Country: None (occurrence: None)
  Receive Date: 20060104
  Receipt Date: 20051220
  Transmission Date: 20060701
  Serious: Yes (Hospitalization, Other)
  Sender: FDA-Public Use
  Company Number: 2005171162

PATIENT
  Age: 42 Year
  Sex: Male
  Weight: 87.0906 kg

DRUGS (9)
  1. VIAGRA [Suspect]
     Indication: ILL-DEFINED DISORDER
     Dates: start: 19970101
  2. DILANTIN [Suspect]
     Indication: CONVULSION
     Dosage: 300 MG (300 MG)
     Dates: start: 19970101
  3. PHENYTOIN [Suspect]
     Indication: CONVULSION
  4. PLETAL [Concomitant]
  5. NEXIUM [Concomitant]
  6. PROPOXYPHENE HCL AND ACETAMINOPHEN (DEXTROPROPOXYPHENE HYDROCHLORIDE, [Concomitant]
  7. NEURONTIN [Concomitant]
  8. AVANDAMET (METFORMIN HYDROCHLORIDE, ROSIGLITAZONE) [Concomitant]
  9. ALL OTHER THERAPEUTIC PRODUCTS [Concomitant]

REACTIONS (14)
  - ARTHRALGIA [None]
  - BACK CRUSHING [None]
  - BACK PAIN [None]
  - BODY HEIGHT DECREASED [None]
  - CONDITION AGGRAVATED [None]
  - CONVERSION DISORDER [None]
  - CONVULSION [None]
  - DRUG INEFFECTIVE [None]
  - MEMORY IMPAIRMENT [None]
  - PENILE SIZE REDUCED [None]
  - RHEUMATOID ARTHRITIS [None]
  - ROAD TRAFFIC ACCIDENT [None]
  - SPINAL FRACTURE [None]
  - THERAPEUTIC RESPONSE UNEXPECTED WITH DRUG SUBSTITUTION [None]
